FAERS Safety Report 12248285 (Version 1)
Quarter: 2016Q2

REPORT INFORMATION
  Report Type: Spontaneous
  Country: US (occurrence: None)
  Receive Date: 20160407
  Receipt Date: 20160407
  Transmission Date: 20160815
  Serious: Yes (Life-Threatening, Disabling)
  Sender: FDA-Public Use
  Company Number: None

PATIENT
  Age: 40 Year
  Sex: Female
  Weight: 90.72 kg

DRUGS (5)
  1. PROPANOLOL [Concomitant]
     Active Substance: PROPRANOLOL HYDROCHLORIDE
  2. THIORIDAZINE, 100 MG MYLAN [Suspect]
     Active Substance: THIORIDAZINE
     Indication: SCHIZOAFFECTIVE DISORDER
     Dosage: 90 TABLET(S) THREE TIMES A DAY TAKEN BY MOUTH
     Route: 048
  3. LISINOPRIL. [Concomitant]
     Active Substance: LISINOPRIL
  4. VISTARIL [Concomitant]
     Active Substance: HYDROXYZINE PAMOATE
  5. LAMICTAL [Concomitant]
     Active Substance: LAMOTRIGINE

REACTIONS (3)
  - Electrocardiogram QT prolonged [None]
  - Palpitations [None]
  - Blood prolactin abnormal [None]

NARRATIVE: CASE EVENT DATE: 20160316
